FAERS Safety Report 8673697 (Version 5)
Quarter: 2012Q4

REPORT INFORMATION
  Report Type: Report from Study
  Country: US (occurrence: US)
  Receive Date: 20120719
  Receipt Date: 20120926
  Transmission Date: 20130627
  Serious: Yes (Hospitalization)
  Sender: FDA-Public Use
  Company Number: US-CELGENEUS-163-AB007-11102874

PATIENT
  Age: 65 Year
  Sex: Male
  Weight: 77 kg

DRUGS (24)
  1. ABI-007 [Suspect]
     Indication: PANCREATIC CANCER METASTATIC
     Dosage: 125 milligram/sq. meter
     Route: 041
     Dates: start: 20110927
  2. ABI-007 [Suspect]
     Dosage: 125 milligram/sq. meter
     Route: 041
     Dates: start: 20111004, end: 20111025
  3. ABI-007 [Suspect]
     Dosage: 243 Milligram
     Route: 041
     Dates: start: 20111108, end: 20111108
  4. GEMCITABINE [Suspect]
     Indication: PANCREATIC CANCER METASTATIC
     Dosage: 1000 milligram/sq. meter
     Route: 041
     Dates: start: 20110927
  5. GEMCITABINE [Suspect]
     Dosage: 1000 milligram/sq. meter
     Route: 041
     Dates: start: 20111004, end: 20111025
  6. GEMCITABINE [Suspect]
     Dosage: 1940 Milligram
     Route: 041
     Dates: start: 20111108
  7. GEMCITABINE [Suspect]
     Dosage: 1410 Milligram
     Route: 041
     Dates: start: 20111206
  8. AUGMENTIN [Concomitant]
     Indication: FEVER
     Dosage: 1500 Milligram
     Route: 048
     Dates: start: 20111020
  9. GLYBERIDE/METFORMIN [Concomitant]
     Indication: DIABETES MELLITUS
     Dosage: 2.5/500mg
     Route: 048
  10. SIMVASTATIN [Concomitant]
     Indication: HYPERCHOLESTEROLEMIA
     Dosage: 40 Milligram
     Route: 048
  11. LISINOPRIL [Concomitant]
     Indication: HYPERTENSION
     Route: 048
  12. ASA [Concomitant]
     Indication: SUPPLEMENTATION THERAPY
     Dosage: 81 Milligram
     Route: 048
  13. HEPARIN [Concomitant]
     Indication: DRUG USE FOR UNKNOWN INDICATION
     Dosage: 5000 Units
     Route: 058
     Dates: start: 20111025
  14. HEPARIN [Concomitant]
     Dosage: 5000 Units
     Route: 058
     Dates: start: 20111122
  15. OXYCODONE HCL [Concomitant]
     Indication: DRUG USE FOR UNKNOWN INDICATION
     Dosage: 5 Milligram
     Route: 048
     Dates: start: 20111025
  16. CIPROFLOXACIN [Concomitant]
     Indication: DRUG USE FOR UNKNOWN INDICATION
     Dosage: 500 Milligram
     Route: 048
  17. POTASSIUM [Concomitant]
     Indication: DRUG USE FOR UNKNOWN INDICATION
     Dosage: 30 Micromole
     Route: 041
  18. ATENOLOL [Concomitant]
     Indication: DRUG USE FOR UNKNOWN INDICATION
     Dosage: 50 Milligram
     Route: 048
  19. PIP/TAZO [Concomitant]
     Indication: DRUG USE FOR UNKNOWN INDICATION
     Dosage: 3.375 Gram
     Route: 041
     Dates: start: 20111025
  20. PIP/TAZO [Concomitant]
     Dosage: 4.5 Gram
     Route: 041
     Dates: start: 20111122
  21. POTASSIUM CHLORIDE [Concomitant]
     Indication: DRUG USE FOR UNKNOWN INDICATION
     Dosage: 40 Milliequivalents
     Route: 041
     Dates: start: 20111122
  22. DEXTROSE [Concomitant]
     Indication: DRUG USE FOR UNKNOWN INDICATION
     Dosage: 1000
     Route: 041
     Dates: start: 20111122
  23. ONDANSETRON [Concomitant]
     Indication: DRUG USE FOR UNKNOWN INDICATION
     Dosage: 8 Milligram
     Route: 041
     Dates: start: 20111206
  24. METRONIDAZOLE [Concomitant]
     Indication: DRUG USE FOR UNKNOWN INDICATION
     Dosage: 500 Milligram
     Route: 048
     Dates: start: 20111025

REACTIONS (1)
  - Sepsis [Recovered/Resolved]
